FAERS Safety Report 19473899 (Version 1)
Quarter: 2021Q2

REPORT INFORMATION
  Report Type: Spontaneous
  Country: DE (occurrence: DE)
  Receive Date: 20210629
  Receipt Date: 20210629
  Transmission Date: 20210717
  Serious: Yes (Other)
  Sender: FDA-Public Use
  Company Number: NVSC2021DE144019

PATIENT
  Sex: Male

DRUGS (3)
  1. BROMAZEPAM [Interacting]
     Active Substance: BROMAZEPAM
     Indication: SLEEP DISORDER
     Dosage: 0.5 DF
     Route: 048
  2. VOLTAREN RESINAT [Interacting]
     Active Substance: DICLOFENAC
     Indication: PAIN IN EXTREMITY
  3. VOLTAREN RESINAT [Suspect]
     Active Substance: DICLOFENAC
     Indication: ARTHRALGIA
     Dosage: UNK, BID
     Route: 065

REACTIONS (4)
  - Cerebrovascular accident [Unknown]
  - Pain [Unknown]
  - Drug interaction [Unknown]
  - Taste disorder [Unknown]
